FAERS Safety Report 10043936 (Version 1)
Quarter: 2014Q1

REPORT INFORMATION
  Report Type: Spontaneous
  Country: US (occurrence: US)
  Receive Date: 20140328
  Receipt Date: 20140328
  Transmission Date: 20141002
  Serious: No
  Sender: FDA-Public Use
  Company Number: GB-MYLANLABS-2013S1007555

PATIENT
  Sex: Female

DRUGS (5)
  1. EMSAM (SELEGILINE TRANSDERMAL SYSTEM) [Suspect]
     Indication: DEPRESSION
     Route: 062
     Dates: start: 201301
  2. SEROQUEL [Suspect]
     Indication: DEPRESSION
     Dates: start: 20130305
  3. SEROQUEL [Suspect]
     Indication: INSOMNIA
     Dates: start: 20130305
  4. SAPHRIS [Concomitant]
     Route: 060
  5. SLEEP /07754701/ [Concomitant]
     Indication: INSOMNIA
     Dosage: USING OTHER MEDICATIONS FOR SLEEP AS WELL.

REACTIONS (3)
  - Drug ineffective [Recovered/Resolved]
  - Depression [Recovered/Resolved]
  - Insomnia [Recovered/Resolved]
